FAERS Safety Report 8426495-4 (Version None)
Quarter: 2012Q2

REPORT INFORMATION
  Report Type: 
  Country: None (occurrence: None)
  Receive Date: 20120323
  Receipt Date: 20110802
  Transmission Date: 20120825
  Serious: Yes (Hospitalization)
  Sender: FDA-Public Use
  Company Number: 163-21880-11080560

PATIENT
  Age: 64 Year
  Sex: Male

DRUGS (7)
  1. REVLIMID [Suspect]
  2. REVLIMID [Suspect]
     Indication: MULTIPLE MYELOMA
     Dosage: 5 MG, ON DAYS 21-28, PO 15 MG, ON DAYS 1-20, PO ON DAYS 21-28,PO DAYS 1-20, PO
     Route: 048
     Dates: start: 20080508
  3. REVLIMID [Suspect]
     Indication: MULTIPLE MYELOMA
     Dosage: 5 MG, ON DAYS 21-28, PO 15 MG, ON DAYS 1-20, PO ON DAYS 21-28,PO DAYS 1-20, PO
     Route: 048
     Dates: start: 20081101
  4. REVLIMID [Suspect]
     Indication: MULTIPLE MYELOMA
     Dosage: 5 MG, ON DAYS 21-28, PO 15 MG, ON DAYS 1-20, PO ON DAYS 21-28,PO DAYS 1-20, PO
     Route: 048
     Dates: start: 20081101
  5. REVLIMID [Suspect]
     Indication: MULTIPLE MYELOMA
     Dosage: 5 MG, ON DAYS 21-28, PO 15 MG, ON DAYS 1-20, PO ON DAYS 21-28,PO DAYS 1-20, PO
     Route: 048
     Dates: start: 20080508
  6. DEXAMEHTASONE (DEXAMETHASONE) [Concomitant]
  7. VELCADE [Concomitant]

REACTIONS (1)
  - LUNG INFECTION [None]
